FAERS Safety Report 14895866 (Version 2)
Quarter: 2018Q4

REPORT INFORMATION
  Report Type: Spontaneous
  Country: PL (occurrence: PL)
  Receive Date: 20180515
  Receipt Date: 20181222
  Transmission Date: 20190204
  Serious: Yes (Other)
  Sender: FDA-Public Use
  Company Number: PL-ACCORD-066923

PATIENT
  Age: 53 Year
  Sex: Male

DRUGS (3)
  1. INSULIN [Concomitant]
     Active Substance: INSULIN NOS
     Indication: DIABETIC RETINOPATHY
  2. NILOTINIB [Suspect]
     Active Substance: NILOTINIB
     Indication: CHRONIC MYELOID LEUKAEMIA
     Dosage: 400 MG, BID (2X DAILY)
  3. ROSUVASTATIN. [Suspect]
     Active Substance: ROSUVASTATIN
     Indication: LIPIDS ABNORMAL

REACTIONS (6)
  - Diabetic foot [Unknown]
  - Blood glucose fluctuation [Unknown]
  - Myocardial ischaemia [Unknown]
  - Cardiac failure chronic [Recovered/Resolved]
  - Lipids abnormal [Unknown]
  - General physical health deterioration [Unknown]
